FAERS Safety Report 7917697-1 (Version None)
Quarter: 2011Q4

REPORT INFORMATION
  Report Type: 
  Country: None (occurrence: None)
  Receive Date: 20111116
  Receipt Date: 20111107
  Transmission Date: 20120403
  Serious: Yes (Other)
  Sender: FDA-Public Use
  Company Number: US-BRISTOL-MYERS SQUIBB COMPANY-16220139

PATIENT
  Sex: Female

DRUGS (2)
  1. ABILIFY [Suspect]
     Indication: BIPOLAR DISORDER
     Dosage: DURATION OF THERAPY:ABOUT 5 YRS DOSE REDUCED TO 2.5MG/D DOSE INCREASED TO 15MG/D
  2. LEXAPRO [Suspect]

REACTIONS (6)
  - MENOPAUSAL SYMPTOMS [None]
  - WEIGHT INCREASED [None]
  - ANXIETY [None]
  - AMENORRHOEA [None]
  - SWELLING [None]
  - SJOGREN'S SYNDROME [None]
